FAERS Safety Report 13744606 (Version 1)
Quarter: 2017Q3

REPORT INFORMATION
  Report Type: Spontaneous
  Country: US (occurrence: US)
  Receive Date: 20170712
  Receipt Date: 20170712
  Transmission Date: 20171127
  Serious: No
  Sender: FDA-Public Use
  Company Number: US-ALEMBIC PHARMACUETICALS LIMITED-2017SCAL000545

PATIENT

DRUGS (8)
  1. VALSARTAN. [Suspect]
     Active Substance: VALSARTAN
     Dosage: 1 DF, OD
     Route: 048
     Dates: start: 20170609, end: 20170609
  2. MYRBETRIQ [Concomitant]
     Active Substance: MIRABEGRON
     Indication: URINARY TRACT DISORDER
     Dosage: 1 DF, OD
     Route: 048
  3. VALSARTAN. [Suspect]
     Active Substance: VALSARTAN
     Indication: CARDIAC DISORDER
     Dosage: 1 DF, OD
     Route: 048
     Dates: start: 201706
  4. LANSOPRAZOLE. [Concomitant]
     Active Substance: LANSOPRAZOLE
     Indication: GASTROINTESTINAL DISORDER
     Dosage: 1 DF, OD
     Route: 048
  5. VALSARTAN. [Suspect]
     Active Substance: VALSARTAN
     Dosage: 1 DF, OD
     Route: 048
     Dates: start: 20170606
  6. ZETIA [Concomitant]
     Active Substance: EZETIMIBE
     Indication: PRODUCT USED FOR UNKNOWN INDICATION
     Dosage: 1 DF, OD
     Route: 048
  7. MULTIVITAMINS                      /00116001/ [Concomitant]
     Active Substance: VITAMINS
     Indication: PRODUCT USED FOR UNKNOWN INDICATION
     Dosage: UNK
  8. VALSARTAN. [Suspect]
     Active Substance: VALSARTAN
     Dosage: 1 DF, OD
     Route: 048
     Dates: start: 20170608

REACTIONS (6)
  - Plicated tongue [Recovered/Resolved]
  - Swollen tongue [Recovered/Resolved]
  - Tongue disorder [Recovered/Resolved]
  - Drug dose omission [Unknown]
  - Drug hypersensitivity [Recovered/Resolved]
  - Dyspnoea [Recovered/Resolved]

NARRATIVE: CASE EVENT DATE: 201706
